FAERS Safety Report 14540905 (Version 1)
Quarter: 2018Q1

REPORT INFORMATION
  Report Type: Spontaneous
  Country: DE (occurrence: DE)
  Receive Date: 20180216
  Receipt Date: 20180216
  Transmission Date: 20180509
  Serious: Yes (Life-Threatening, Hospitalization, Disabling)
  Sender: FDA-Public Use
  Company Number: DE-OTSUKA-KJ20051431

PATIENT
  Age: 55 Year
  Sex: Female

DRUGS (5)
  1. TEMAZEPAM. [Concomitant]
     Active Substance: TEMAZEPAM
     Indication: SLEEP DISORDER
     Dosage: UNK
     Route: 065
     Dates: start: 20050225, end: 20050727
  2. MIRTAZAPINE. [Concomitant]
     Active Substance: MIRTAZAPINE
     Indication: DEPRESSIVE SYMPTOM
     Dosage: 15MG 29-MAR-2005 TO 25-APR-2005; 30MG 26-APR-2005 TO 26-JUL-2005
     Route: 048
     Dates: start: 20050329, end: 20050727
  3. FENISTIL [Concomitant]
     Active Substance: DIMETHINDENE
     Indication: PRURITUS
     Dosage: UNK
     Route: 065
     Dates: start: 20050225, end: 20050727
  4. ABILIFY [Suspect]
     Active Substance: ARIPIPRAZOLE
     Indication: SCHIZOPHRENIA
     Dosage: 30 MG, UNK
     Route: 048
     Dates: start: 20050326, end: 20050727
  5. DIAZEPAM. [Concomitant]
     Active Substance: DIAZEPAM
     Indication: CATATONIA
     Dosage: UNK
     Route: 065
     Dates: start: 20050721, end: 20050728

REACTIONS (4)
  - Parkinsonism [Recovered/Resolved]
  - Dysphagia [Recovered/Resolved]
  - Respiratory failure [Recovered/Resolved]
  - Salivary hypersecretion [Recovered/Resolved]

NARRATIVE: CASE EVENT DATE: 20050719
